FAERS Safety Report 7216349-3 (Version None)
Quarter: 2011Q1

REPORT INFORMATION
  Report Type: 
  Country: None (occurrence: None)
  Receive Date: 20110107
  Receipt Date: 20110106
  Transmission Date: 20110831
  Serious: Yes (Other)
  Sender: FDA-Public Use
  Company Number: BR-ABBOTT-10P-020-0682129-00

PATIENT
  Sex: Female
  Weight: 68 kg

DRUGS (2)
  1. DICLOFENAC; CODEINE PHOSPHATE  (CODATEN) [Concomitant]
     Indication: PAIN
     Route: 048
  2. HUMIRA [Suspect]
     Indication: RHEUMATOID ARTHRITIS
     Route: 058

REACTIONS (9)
  - BODY HEIGHT DECREASED [None]
  - MOBILITY DECREASED [None]
  - CHONDROPATHY [None]
  - APPLICATION SITE PAIN [None]
  - PAIN [None]
  - GAIT DISTURBANCE [None]
  - NERVOUSNESS [None]
  - ANAEMIA [None]
  - WEIGHT INCREASED [None]
